FAERS Safety Report 4410980-6 (Version None)
Quarter: 2004Q3

REPORT INFORMATION
  Report Type: 
  Country: None (occurrence: None)
  Receive Date: 20040729
  Receipt Date: 20040709
  Transmission Date: 20050211
  Serious: Yes (Other)
  Sender: FDA-Public Use
  Company Number: JP-GLAXOSMITHKLINE-B0339025A

PATIENT
  Age: 83 Year
  Sex: Male
  Weight: 41 kg

DRUGS (3)
  1. ZANTAC [Suspect]
     Indication: GASTRIC ULCER
     Dosage: 50MG PER DAY
     Route: 042
     Dates: start: 20040703
  2. MODACIN [Suspect]
     Indication: PNEUMONIA
     Dosage: 1G TWICE PER DAY
     Route: 042
     Dates: start: 20040703
  3. ERYTHROCIN [Concomitant]
     Route: 065

REACTIONS (1)
  - CONVULSION [None]
